FAERS Safety Report 7145398-9 (Version None)
Quarter: 2010Q4

REPORT INFORMATION
  Report Type: 
  Country: None (occurrence: None)
  Receive Date: 20101208
  Receipt Date: 20101202
  Transmission Date: 20110411
  Serious: Yes (Death, Hospitalization)
  Sender: FDA-Public Use
  Company Number: PHHO2010US08469

PATIENT
  Sex: Male
  Weight: 61.2 kg

DRUGS (11)
  1. AMN107 AMN+CAP [Suspect]
     Indication: GASTROINTESTINAL STROMAL TUMOUR
     Dosage: 400 MG, BID
     Route: 048
     Dates: start: 20100521
  2. LISINOPRIL AND HYDROCHLOROTHIAZIDE [Concomitant]
  3. METOPROLOL SUCCINATE [Concomitant]
  4. ASPIRIN [Concomitant]
  5. MULTI-VITAMIN [Concomitant]
  6. AMBIEN [Concomitant]
  7. COMPAZINE [Concomitant]
  8. SPIRONOLACTONE [Concomitant]
  9. ZOFRAN [Concomitant]
  10. MARINOL [Concomitant]
  11. ZYRTEC-D 12 HOUR [Concomitant]

REACTIONS (6)
  - DEEP VEIN THROMBOSIS [None]
  - GASTROINTESTINAL STROMAL TUMOUR [None]
  - HOSPICE CARE [None]
  - MALIGNANT NEOPLASM PROGRESSION [None]
  - PAIN IN EXTREMITY [None]
  - SKIN DISCOLOURATION [None]
